FAERS Safety Report 7355943-6 (Version None)
Quarter: 2011Q1

REPORT INFORMATION
  Report Type: 
  Country: None (occurrence: None)
  Receive Date: 20110310
  Receipt Date: 20110310
  Transmission Date: 20110831
  Serious: Yes (Death)
  Sender: FDA-Public Use
  Company Number: None

PATIENT
  Age: 19 Year
  Sex: Male
  Weight: 59.1 kg

DRUGS (2)
  1. CLONAZEPAM [Suspect]
     Indication: ANXIETY
     Dosage: 0.5 MGMB BID-TID PRN MOUTH
     Route: 048
     Dates: start: 20110204, end: 20110226
  2. PRISTIQ [Suspect]
     Indication: DEPRESSION
     Dosage: 50MG QD MOUTH
     Route: 048
     Dates: start: 20110204, end: 20110226

REACTIONS (2)
  - COMPLETED SUICIDE [None]
  - ASPHYXIA [None]
